FAERS Safety Report 4728976-3 (Version None)
Quarter: 2005Q3

REPORT INFORMATION
  Report Type: 
  Country: None (occurrence: None)
  Receive Date: 20050729
  Receipt Date: 20041207
  Transmission Date: 20060218
  Serious: No
  Sender: FDA-Public Use
  Company Number: US-GLAXOSMITHKLINE-A0536578A

PATIENT
  Age: 55 Year
  Sex: Female

DRUGS (5)
  1. IMITREX [Suspect]
     Indication: MIGRAINE
     Dosage: 25MG VARIABLE DOSE
     Route: 048
     Dates: start: 19960101
  2. IMITREX [Suspect]
     Route: 045
  3. LORAZEPAM [Concomitant]
  4. ALLEGRA [Concomitant]
  5. PANCREASE [Concomitant]

REACTIONS (2)
  - DIARRHOEA [None]
  - MIGRAINE [None]
